FAERS Safety Report 5895821-2 (Version None)
Quarter: 2008Q3

REPORT INFORMATION
  Report Type: 
  Country: None (occurrence: None)
  Receive Date: 20080828
  Receipt Date: 20080606
  Transmission Date: 20090109
  Serious: Yes (Hospitalization)
  Sender: FDA-Public Use
  Company Number: 200813627US

PATIENT
  Age: 62 Year
  Sex: Female

DRUGS (3)
  1. LASIX [Suspect]
  2. REVLIMID [Suspect]
     Indication: MULTIPLE MYELOMA
     Dosage: PO
     Route: 048
     Dates: start: 20070529
  3. METOLAZONE [Suspect]

REACTIONS (3)
  - BLOOD SODIUM DECREASED [None]
  - FATIGUE [None]
  - JOINT SWELLING [None]
